FAERS Safety Report 7232739-7 (Version None)
Quarter: 2011Q1

REPORT INFORMATION
  Report Type: 
  Country: None (occurrence: None)
  Receive Date: 20110119
  Receipt Date: 20110112
  Transmission Date: 20110831
  Serious: Yes (Other)
  Sender: FDA-Public Use
  Company Number: JP-ALLERGAN-1016988US

PATIENT
  Age: 70 Year
  Sex: Male

DRUGS (2)
  1. BOTOX [Suspect]
     Indication: PRODUCT USED FOR UNKNOWN INDICATION
     Dosage: UNK
     Route: 030
     Dates: start: 20101221, end: 20101221
  2. BOTOX [Suspect]
     Dosage: UNK
     Route: 030
     Dates: start: 20101227, end: 20101227

REACTIONS (7)
  - INSOMNIA [None]
  - ABNORMAL SENSATION IN EYE [None]
  - MALAISE [None]
  - VIITH NERVE PARALYSIS [None]
  - PARALYSIS [None]
  - SWELLING [None]
  - GAIT DISTURBANCE [None]
